FAERS Safety Report 12522698 (Version 1)
Quarter: 2016Q3

REPORT INFORMATION
  Report Type: Spontaneous
  Country: US (occurrence: US)
  Receive Date: 20160701
  Receipt Date: 20160701
  Transmission Date: 20161109
  Serious: No
  Sender: FDA-Public Use
  Company Number: US-FRI-1000084889

PATIENT
  Age: 34 Year
  Sex: Male

DRUGS (2)
  1. VRAYLAR [Suspect]
     Active Substance: CARIPRAZINE
     Indication: SCHIZOAFFECTIVE DISORDER
     Route: 048
  2. VRAYLAR [Suspect]
     Active Substance: CARIPRAZINE
     Dosage: 6MG
     Route: 048

REACTIONS (2)
  - Intentional product use issue [Recovered/Resolved]
  - Vertigo [Recovered/Resolved]
